FAERS Safety Report 15289530 (Version 2)
Quarter: 2021Q2

REPORT INFORMATION
  Report Type: Spontaneous
  Country: US (occurrence: US)
  Receive Date: 20180817
  Receipt Date: 20210402
  Transmission Date: 20210716
  Serious: No
  Sender: FDA-Public Use
  Company Number: US-SHIRE-US201831839

PATIENT
  Age: 77 Year
  Sex: Female
  Weight: 60 kg

DRUGS (8)
  1. GATTEX [Suspect]
     Active Substance: TEDUGLUTIDE\WATER
     Indication: PRODUCT USED FOR UNKNOWN INDICATION
     Dosage: 0.331 ML, 1X/DAY:QD
     Route: 065
     Dates: start: 20170922
  2. GATTEX [Suspect]
     Active Substance: TEDUGLUTIDE\WATER
     Dosage: 0.300 MILLILITER, QD
     Route: 065
     Dates: start: 20170922
  3. GATTEX [Suspect]
     Active Substance: TEDUGLUTIDE\WATER
     Indication: PRODUCT USED FOR UNKNOWN INDICATION
     Dosage: 0.331 ML, 1X/DAY:QD
     Route: 065
     Dates: start: 20170922
  4. GATTEX [Suspect]
     Active Substance: TEDUGLUTIDE\WATER
     Indication: PRODUCT USED FOR UNKNOWN INDICATION
     Dosage: 0.331 ML, 1X/DAY:QD
     Route: 065
     Dates: start: 20170922
  5. GATTEX [Suspect]
     Active Substance: TEDUGLUTIDE\WATER
     Dosage: 0.300 MILLILITER, QD
     Route: 065
     Dates: start: 20170922
  6. GATTEX [Suspect]
     Active Substance: TEDUGLUTIDE\WATER
     Indication: PRODUCT USED FOR UNKNOWN INDICATION
     Dosage: 0.331 ML, 1X/DAY:QD
     Route: 065
     Dates: start: 20170922
  7. GATTEX [Suspect]
     Active Substance: TEDUGLUTIDE\WATER
     Dosage: 0.300 MILLILITER, QD
     Route: 065
     Dates: start: 20170922
  8. GATTEX [Suspect]
     Active Substance: TEDUGLUTIDE\WATER
     Dosage: 0.300 MILLILITER, QD
     Route: 065
     Dates: start: 20170922

REACTIONS (2)
  - Diarrhoea [Unknown]
  - Therapy cessation [Unknown]

NARRATIVE: CASE EVENT DATE: 20180815
